FAERS Safety Report 6160704-X (Version None)
Quarter: 2009Q2

REPORT INFORMATION
  Report Type: 
  Country: None (occurrence: None)
  Receive Date: 20090416
  Receipt Date: 20090401
  Transmission Date: 20091009
  Serious: Yes (Life-Threatening, Other)
  Sender: FDA-Public Use
  Company Number: 2009S1005828

PATIENT
  Age: 35 Year
  Sex: Female
  Weight: 80 kg

DRUGS (8)
  1. LORAZEPAM [Suspect]
     Indication: INTENTIONAL OVERDOSE
     Dosage: 20 MG; ONCE; ORAL
     Route: 048
     Dates: start: 20090401, end: 20090401
  2. DIAZEPAM [Suspect]
     Indication: INTENTIONAL OVERDOSE
     Dosage: 250 MG; ONCE; ORAL
     Route: 047
     Dates: start: 20090401, end: 20090401
  3. DOMINAL (ACETYLSALICYLIC ACID) (80 MG) [Suspect]
     Indication: INTENTIONAL OVERDOSE
     Dosage: 800 MG; ONCE; ORAL
     Route: 048
     Dates: start: 20090401, end: 20090401
  4. MELPERON (MELPERONE HYDROCHLORIDE)  (25 MG) [Suspect]
     Indication: INTENTIONAL OVERDOSE
     Dosage: 250 MG; ONCE; ORAL
     Route: 048
     Dates: start: 20090401, end: 20090401
  5. MELPERON (MELPERON HYDROCHLORIDE) (25 MG) [Suspect]
     Indication: INTENTIONAL OVERDOSE
     Dosage: 250 MG; ONCE; ORAL
     Route: 048
     Dates: start: 20090401, end: 20090401
  6. TRUXAL (CHLORPROTHIXENE) [Suspect]
     Indication: INTENTIONAL OVERDOSE
     Dosage: 100 MG; ONCE; ORAL
     Route: 048
     Dates: start: 20090401, end: 20090401
  7. ZOLPIDEM [Suspect]
     Indication: INTENTIONAL OVERDOSE
     Dosage: 200 MG; ONCE; ORAL
     Route: 048
     Dates: start: 20090401, end: 20090401
  8. ZOPLICONE (ZOPLICONE) (7.5 MG) [Suspect]
     Indication: INTENTIONAL OVERDOSE
     Dosage: 150 MG; ONCE; ORAL
     Route: 048
     Dates: start: 20090401, end: 20090401

REACTIONS (3)
  - ALCOHOL USE [None]
  - MULTIPLE DRUG OVERDOSE INTENTIONAL [None]
  - SOMNOLENCE [None]
